FAERS Safety Report 4816723-6 (Version None)
Quarter: 2005Q4

REPORT INFORMATION
  Report Type: 
  Country: None (occurrence: None)
  Receive Date: 20051031
  Receipt Date: 20051031
  Transmission Date: 20060501
  Serious: Yes (Life-Threatening)
  Sender: FDA-Public Use
  Company Number: None

PATIENT
  Sex: Female
  Weight: 54.4316 kg

DRUGS (2)
  1. OXYCONTIN [Suspect]
     Dosage: 40MG AND 90 MG BREAKING THE PILL TO AS MUCH AS   NASAL
     Route: 045
  2. SEE IMAGE [Concomitant]

REACTIONS (8)
  - DRUG DEPENDENCE [None]
  - DRUG WITHDRAWAL SYNDROME [None]
  - ECONOMIC PROBLEM [None]
  - FAMILY STRESS [None]
  - HALLUCINATION [None]
  - LOSS OF EMPLOYMENT [None]
  - MUSCLE SPASMS [None]
  - PAIN [None]
